FAERS Safety Report 21952006 (Version 1)
Quarter: 2023Q1

REPORT INFORMATION
  Report Type: Spontaneous
  Country: DK (occurrence: None)
  Receive Date: 20230203
  Receipt Date: 20230203
  Transmission Date: 20230418
  Serious: Yes (Other)
  Sender: FDA-Public Use
  Company Number: 2023A022851

PATIENT
  Age: 69 Year
  Sex: Female
  Weight: 78 kg

DRUGS (18)
  1. DAPAGLIFLOZIN [Suspect]
     Active Substance: DAPAGLIFLOZIN
     Indication: Diabetes mellitus
     Dosage: STRENGTH: 10 MG
     Route: 048
     Dates: start: 20221010, end: 20221121
  2. COZAAR [Concomitant]
     Active Substance: LOSARTAN POTASSIUM
     Indication: Hypertension
     Route: 048
     Dates: start: 20191120
  3. METOPROLOL TARTRATE [Concomitant]
     Active Substance: METOPROLOL TARTRATE
     Indication: Hypertension
     Route: 048
     Dates: start: 20120919
  4. MABLET [Concomitant]
     Indication: Nutritional supplementation
     Route: 048
     Dates: start: 20191219, end: 20230109
  5. FURIX [Concomitant]
     Indication: Diuretic therapy
     Route: 048
     Dates: start: 20200915, end: 20230109
  6. ACETAMINOPHEN [Concomitant]
     Active Substance: ACETAMINOPHEN
     Indication: Pain
     Route: 048
     Dates: start: 20121005
  7. ALBUTEROL SULFATE [Concomitant]
     Active Substance: ALBUTEROL SULFATE
     Indication: Bronchospasm
     Dosage: 0.1MG INTERMITTENT
     Route: 055
     Dates: start: 20211027, end: 20230109
  8. DICLOSUP [Concomitant]
     Indication: Pain
     Dosage: 100.0MG INTERMITTENT
     Route: 054
     Dates: start: 20220621, end: 20230109
  9. OXYCODONE HYDROCHLORIDE [Concomitant]
     Active Substance: OXYCODONE HYDROCHLORIDE
     Indication: Pain
     Route: 048
     Dates: start: 20210902
  10. CYMBALTA [Concomitant]
     Active Substance: DULOXETINE HYDROCHLORIDE
     Indication: Neuralgia
     Route: 048
     Dates: start: 20160127
  11. VAGIFEM [Concomitant]
     Active Substance: ESTRADIOL
     Indication: Hormone therapy
     Route: 067
     Dates: start: 20210203
  12. EZETIMIBE [Concomitant]
     Active Substance: EZETIMIBE
     Indication: Hypercholesterolaemia
     Route: 048
     Dates: start: 20120711
  13. NORVASC [Concomitant]
     Active Substance: AMLODIPINE BESYLATE
     Indication: Hypertension
     Route: 048
     Dates: start: 20211202
  14. CRESTOR [Concomitant]
     Active Substance: ROSUVASTATIN CALCIUM
     Indication: Hypercholesterolaemia
     Route: 048
     Dates: start: 20211202
  15. BETOLVEX [Concomitant]
     Indication: Vitamin B12 deficiency
     Route: 048
     Dates: start: 20211004
  16. OXAZEPAM [Concomitant]
     Active Substance: OXAZEPAM
     Indication: Restlessness
     Route: 048
     Dates: start: 20220609
  17. METFORMIN HYDROCHLORIDE\VILDAGLIPTIN [Concomitant]
     Active Substance: METFORMIN HYDROCHLORIDE\VILDAGLIPTIN
     Dosage: STRENGTH: 50+1000 MG
     Route: 048
     Dates: start: 20170828
  18. CLOPIDOGREL STADA [Concomitant]
     Indication: Thrombosis prophylaxis
     Route: 048
     Dates: start: 20200609

REACTIONS (1)
  - Angina pectoris [Recovered/Resolved]

NARRATIVE: CASE EVENT DATE: 20221015
